FAERS Safety Report 8861966 (Version 3)
Quarter: 2012Q4

REPORT INFORMATION
  Report Type: 
  Country: US (occurrence: US)
  Receive Date: 20121025
  Receipt Date: 20121112
  Transmission Date: 20130627
  Serious: Yes (Hospitalization, Other)
  Sender: FDA-Public Use
  Company Number: US-JNJFOC-20121009710

PATIENT
  Age: 78 Year
  Sex: Male
  Weight: 88.6 kg

DRUGS (14)
  1. XARELTO [Suspect]
     Indication: CEREBROVASCULAR ACCIDENT PROPHYLAXIS
     Route: 048
     Dates: end: 20120731
  2. XARELTO [Suspect]
     Indication: CEREBROVASCULAR ACCIDENT PROPHYLAXIS
     Route: 048
     Dates: start: 20120622
  3. XARELTO [Suspect]
     Indication: ATRIAL FIBRILLATION
     Route: 048
     Dates: end: 20120731
  4. XARELTO [Suspect]
     Indication: ATRIAL FIBRILLATION
     Route: 048
     Dates: start: 20120622
  5. HYDROCHLOROTHIAZIDE [Concomitant]
     Route: 048
  6. FISH OIL [Concomitant]
     Route: 048
  7. ASPIRIN [Concomitant]
     Route: 048
  8. RED YEAST RICE EXTRACT [Concomitant]
     Route: 048
  9. HYTRIN [Concomitant]
  10. POTASSIUM CHLORIDE [Concomitant]
  11. ATROVENT [Concomitant]
     Route: 055
  12. ADVAIR [Concomitant]
     Route: 055
  13. NITROGLYCERINE [Concomitant]
     Route: 060
  14. ENALAPRIL [Concomitant]

REACTIONS (3)
  - Gastrointestinal haemorrhage [Unknown]
  - Constipation [Unknown]
  - Melaena [Unknown]
